FAERS Safety Report 7178858-5 (Version None)
Quarter: 2010Q4

REPORT INFORMATION
  Report Type: 
  Country: None (occurrence: None)
  Receive Date: 20101221
  Receipt Date: 20101213
  Transmission Date: 20110411
  Serious: Yes (Other)
  Sender: FDA-Public Use
  Company Number: JP-BRISTOL-MYERS SQUIBB COMPANY-15448194

PATIENT
  Age: 36 Year
  Sex: Female

DRUGS (7)
  1. ABILIFY [Suspect]
     Indication: SCHIZOPHRENIA
     Dosage: ABILIFY TABS 6 MG
     Route: 048
  2. LORAZEPAM [Concomitant]
     Dosage: TABS
  3. AZULENE SODIUM SULFONATE + L-GLUTAMINE [Concomitant]
     Dosage: GRANULE
  4. TEPRENONE [Concomitant]
     Dosage: TEPRENONE CAPS
  5. DEPAS [Concomitant]
     Dosage: DEPAS TABS
  6. EURODIN [Concomitant]
  7. CHLORPROMAZINE [Concomitant]
     Dosage: CHLORPROMAZINE + PREPARATION

REACTIONS (2)
  - ABORTION INFECTED [None]
  - PREGNANCY [None]
